FAERS Safety Report 19124117 (Version 1)
Quarter: 2021Q2

REPORT INFORMATION
  Report Type: Spontaneous
  Country: US (occurrence: US)
  Receive Date: 20210413
  Receipt Date: 20210413
  Transmission Date: 20210717
  Serious: Yes (Other)
  Sender: FDA-Public Use
  Company Number: US-HIKMA PHARMACEUTICALS USA INC.-US-H14001-21-54104

PATIENT
  Age: 15 Year
  Sex: Male

DRUGS (14)
  1. DEXAMETHASONE. [Suspect]
     Active Substance: DEXAMETHASONE
     Indication: HAEMOPHAGOCYTIC LYMPHOHISTIOCYTOSIS
     Dosage: WEEK 5, 6, 15 AND 16
     Route: 065
  2. EMAPALUMAB [Suspect]
     Active Substance: EMAPALUMAB
     Dosage: TWICE A WEEK (WEEK 10 AND11)
     Route: 065
  3. EMAPALUMAB [Suspect]
     Active Substance: EMAPALUMAB
     Dosage: 2.7 MG/KG/DOSE ONCE A WEEK (WEEK 6)
     Route: 065
  4. DEXAMETHASONE. [Suspect]
     Active Substance: DEXAMETHASONE
     Dosage: WEEK 1, 2, 3, 4 AND 9 TO 14 WEEK
     Route: 065
  5. DEXAMETHASONE. [Suspect]
     Active Substance: DEXAMETHASONE
     Dosage: ON WEEK 17
     Route: 065
  6. METHOTREXATE. [Suspect]
     Active Substance: METHOTREXATE
     Indication: HAEMOPHAGOCYTIC LYMPHOHISTIOCYTOSIS
     Dosage: RESTARTED AT WEEK 13 TWICE WEEKLY
     Route: 037
  7. PENTAMIDINE [Concomitant]
     Active Substance: PENTAMIDINE
     Indication: PROPHYLAXIS
     Dosage: UNKNOWN
     Route: 065
  8. POSACONAZOLE [Concomitant]
     Active Substance: POSACONAZOLE
     Indication: PROPHYLAXIS
     Dosage: UNKNOWN
     Route: 065
  9. ETOPOSIDE. [Suspect]
     Active Substance: ETOPOSIDE
     Indication: HAEMOPHAGOCYTIC LYMPHOHISTIOCYTOSIS
     Dosage: ONCE ON WEEK 1, 4, 6
     Route: 065
  10. METHOTREXATE. [Suspect]
     Active Substance: METHOTREXATE
     Indication: NERVOUS SYSTEM DISORDER PROPHYLAXIS
     Dosage: ONCE ON WEEK 2, 3, 4, 5, 10, 11, 14, 16 AN 17
     Route: 037
  11. EMAPALUMAB [Suspect]
     Active Substance: EMAPALUMAB
     Indication: HAEMOPHAGOCYTIC LYMPHOHISTIOCYTOSIS
     Dosage: 2.7 MG/KG/DOSE TWICE A WEEK (WEEK 4 AND 5, 8, 9)
     Route: 065
  12. ETOPOSIDE. [Suspect]
     Active Substance: ETOPOSIDE
     Dosage: WEEK 2 (50% DOSE) AND DURING WEEK THREE
     Route: 065
  13. ETOPOSIDE. [Suspect]
     Active Substance: ETOPOSIDE
     Dosage: WEEK 5 (TWICE WEEKLY)
     Route: 065
  14. DEXAMETHASONE. [Suspect]
     Active Substance: DEXAMETHASONE
     Dosage: WEEK 7, 8
     Route: 065

REACTIONS (2)
  - Musculoskeletal chest pain [Recovered/Resolved]
  - Staphylococcal bacteraemia [Recovered/Resolved]
